FAERS Safety Report 22949109 (Version 2)
Quarter: 2023Q4

REPORT INFORMATION
  Report Type: Spontaneous
  Country: FR (occurrence: FR)
  Receive Date: 20230915
  Receipt Date: 20231114
  Transmission Date: 20240110
  Serious: Yes (Hospitalization, Other)
  Sender: FDA-Public Use
  Company Number: FR-AFSSAPS-NC2023001054

PATIENT
  Age: 83 Year
  Sex: Male
  Weight: 73 kg

DRUGS (5)
  1. AMIODARONE [Interacting]
     Active Substance: AMIODARONE
     Indication: Ventricular tachycardia
     Dosage: 200 MILLIGRAM, ONCE A DAY
     Route: 048
     Dates: start: 20230812, end: 20230818
  2. AMIODARONE [Interacting]
     Active Substance: AMIODARONE
     Dosage: 200 MILLIGRAM, ONCE A DAY
     Route: 048
     Dates: start: 20230823
  3. CORDARONE [Interacting]
     Active Substance: AMIODARONE HYDROCHLORIDE
     Indication: Ventricular tachycardia
     Dosage: 1200 MILLIGRAM, ONCE A DAY
     Route: 042
     Dates: start: 20230811, end: 20230812
  4. CORDARONE [Interacting]
     Active Substance: AMIODARONE HYDROCHLORIDE
     Dosage: 1200 MILLIGRAM, ONCE A DAY
     Route: 042
     Dates: start: 20230821, end: 20230822
  5. RIFAMPIN [Interacting]
     Active Substance: RIFAMPIN
     Indication: Septic arthritis staphylococcal
     Dosage: 600 MILLIGRAM, ONCE A DAY
     Route: 048
     Dates: start: 20230817, end: 20230820

REACTIONS (2)
  - Ventricular tachycardia [Recovered/Resolved]
  - Drug ineffective [Recovered/Resolved]

NARRATIVE: CASE EVENT DATE: 20230821
